FAERS Safety Report 17814558 (Version 2)
Quarter: 2020Q2

REPORT INFORMATION
  Report Type: Spontaneous
  Country: MT (occurrence: MT)
  Receive Date: 20200522
  Receipt Date: 20200529
  Transmission Date: 20200714
  Serious: Yes (Other)
  Sender: FDA-Public Use
  Company Number: MT-BAUSCH-BL-2020-014825

PATIENT
  Age: 78 Year
  Sex: Female

DRUGS (1)
  1. HYDROCORTISONE BUTYRATE. [Suspect]
     Active Substance: HYDROCORTISONE BUTYRATE
     Indication: PSORIASIS
     Dosage: 15 GRAMS TUBE OF HYDROCORTISONE BUTYRATE 0.1 PERCENT CREAM DAILY/ALTERNATE DAYS
     Route: 061

REACTIONS (1)
  - Cushing^s syndrome [Unknown]
